FAERS Safety Report 5786651-0 (Version None)
Quarter: 2008Q2

REPORT INFORMATION
  Report Type: 
  Country: None (occurrence: None)
  Receive Date: 20080618
  Receipt Date: 20080609
  Transmission Date: 20081010
  Serious: Yes (Death, Hospitalization)
  Sender: FDA-Public Use
  Company Number: ADE2008-0230

PATIENT
  Age: 63 Year
  Sex: Male

DRUGS (5)
  1. SIMVASTATIN [Suspect]
     Indication: HYPERCHOLESTEROLAEMIA
     Dosage: ORAL
     Route: 048
  2. FUSIDIC ACID [Suspect]
     Indication: STAPHYLOCOCCAL INFECTION
     Dosage: 10 MG - ORAL
     Route: 048
  3. CEFUROXIME [Concomitant]
  4. METRONIDAZOLE HCL [Concomitant]
  5. VANCOMYCIN [Concomitant]

REACTIONS (11)
  - ARRHYTHMIA [None]
  - COLITIS ISCHAEMIC [None]
  - DIAPHRAGM MUSCLE WEAKNESS [None]
  - DRUG INTERACTION [None]
  - HAEMORRHAGE [None]
  - MYOCARDIAL INFARCTION [None]
  - PERIPHERAL SENSORIMOTOR NEUROPATHY [None]
  - RENAL FAILURE [None]
  - RHABDOMYOLYSIS [None]
  - SPLENIC RUPTURE [None]
  - TACHYPNOEA [None]
